FAERS Safety Report 10205184 (Version 1)
Quarter: 2014Q2

REPORT INFORMATION
  Report Type: Spontaneous
  Country: US (occurrence: US)
  Receive Date: 20140529
  Receipt Date: 20140529
  Transmission Date: 20141212
  Serious: No
  Sender: FDA-Public Use
  Company Number: US-009507513-1405USA014829

PATIENT
  Sex: Female

DRUGS (9)
  1. VICTRELIS [Suspect]
     Indication: CHRONIC HEPATITIS C
     Dosage: TID
     Dates: start: 20140221, end: 20140414
  2. VICTRELIS [Suspect]
     Dosage: QID
     Dates: start: 20140514
  3. RIBAVIRIN [Suspect]
     Indication: CHRONIC HEPATITIS C
     Dosage: 1400 MG 1 IN 1 DAY
     Route: 048
     Dates: start: 20140114, end: 20140406
  4. RIBAVIRIN [Suspect]
     Dosage: 1400 MG 1 IN 1 DAY
     Route: 048
     Dates: start: 20140514
  5. PEGASYS [Suspect]
     Indication: CHRONIC HEPATITIS C
     Dosage: 180 MICROGRAM, QW
     Dates: start: 20140114, end: 20140405
  6. PEGASYS [Suspect]
     Dosage: 180 MICROGRAM, QW
     Dates: start: 20140517
  7. ABILIFY [Concomitant]
     Indication: DEPRESSION
  8. CELEXA [Concomitant]
     Indication: DEPRESSION
  9. TRAZODONE HYDROCHLORIDE [Concomitant]
     Dosage: 100MG

REACTIONS (8)
  - Perihepatic discomfort [Unknown]
  - Influenza like illness [Recovered/Resolved]
  - Hepatic pain [Unknown]
  - Emotional disorder [Unknown]
  - Crying [Unknown]
  - Depression [Recovering/Resolving]
  - Headache [Recovered/Resolved]
  - Haemoglobin decreased [Recovering/Resolving]
